FAERS Safety Report 9749696 (Version 2)
Quarter: 2013Q4

REPORT INFORMATION
  Report Type: Spontaneous
  Country: AU (occurrence: AU)
  Receive Date: 20131212
  Receipt Date: 20131223
  Transmission Date: 20140711
  Serious: Yes (Hospitalization, Other)
  Sender: FDA-Public Use
  Company Number: AU-ABBVIE-13P-008-1175852-00

PATIENT
  Sex: Female

DRUGS (3)
  1. HUMIRA [Suspect]
     Indication: CROHN^S DISEASE
     Dates: end: 2011
  2. HUMIRA [Suspect]
     Indication: ANKYLOSING SPONDYLITIS
  3. INFLIXIMAB [Suspect]
     Indication: PRODUCT USED FOR UNKNOWN INDICATION

REACTIONS (14)
  - Intestinal dilatation [Unknown]
  - Gastrointestinal disorder [Unknown]
  - Weight decreased [Unknown]
  - Nausea [Unknown]
  - Vomiting [Unknown]
  - C-reactive protein abnormal [Unknown]
  - Pyrexia [Unknown]
  - Drug hypersensitivity [Unknown]
  - Subcutaneous abscess [Unknown]
  - Pyoderma gangrenosum [Unknown]
  - Skin infection [Unknown]
  - Crohn^s disease [Unknown]
  - Pyoderma gangrenosum [Unknown]
  - Therapeutic response decreased [Unknown]
